FAERS Safety Report 7451683-3 (Version None)
Quarter: 2011Q2

REPORT INFORMATION
  Report Type: 
  Country: None (occurrence: None)
  Receive Date: 20110502
  Receipt Date: 20100621
  Transmission Date: 20111010
  Serious: No
  Sender: FDA-Public Use
  Company Number: US-ASTRAZENECA-2010SE29194

PATIENT
  Age: 68 Year
  Sex: Female
  Weight: 72.6 kg

DRUGS (7)
  1. XANAX [Concomitant]
     Indication: BIPOLAR DISORDER
  2. VICODIN [Concomitant]
     Indication: CANCER PAIN
  3. PAXIL [Concomitant]
     Indication: BIPOLAR DISORDER
  4. PRAVASTATIN [Concomitant]
     Indication: HYPERCHOLESTEROLAEMIA
  5. DIOVAN [Concomitant]
     Indication: HYPERTENSION
  6. NEXIUM [Suspect]
     Indication: GASTROOESOPHAGEAL REFLUX DISEASE
     Route: 048
     Dates: start: 20090701
  7. OMEPRAZOLE [Concomitant]
     Indication: GASTROOESOPHAGEAL REFLUX DISEASE

REACTIONS (4)
  - ERUCTATION [None]
  - GLOSSODYNIA [None]
  - GASTROOESOPHAGEAL REFLUX DISEASE [None]
  - DRUG DOSE OMISSION [None]
